FAERS Safety Report 21022550 (Version 1)
Quarter: 2022Q2

REPORT INFORMATION
  Report Type: Spontaneous
  Country: FR (occurrence: FR)
  Receive Date: 20220629
  Receipt Date: 20220629
  Transmission Date: 20220721
  Serious: Yes (Hospitalization)
  Sender: FDA-Public Use
  Company Number: None

PATIENT
  Age: 78 Year
  Sex: Female
  Weight: 50 kg

DRUGS (4)
  1. OXALIPLATIN [Suspect]
     Active Substance: OXALIPLATIN
     Indication: Gastrointestinal neoplasm
     Dosage: STRENGTH: 5MG/ML, 60 MG, INTRAVENOUS DRIP
     Dates: start: 20210901, end: 20210901
  2. ONDANSETRON [Concomitant]
     Active Substance: ONDANSETRON
     Indication: Chemotherapy side effect prophylaxis
     Dosage: STRENGTH:2 MG/ML, SOLUTION INJECTABLE, 8 MG
     Route: 040
     Dates: start: 20210901, end: 20210901
  3. METHYLPREDNISOLONE [Concomitant]
     Active Substance: METHYLPREDNISOLONE
     Indication: Chemotherapy side effect prophylaxis
     Dosage: STRENGTH: 120MG, 60 MG
     Route: 041
     Dates: start: 20210901, end: 20210901
  4. LEVOLEUCOVORIN DISODIUM [Concomitant]
     Active Substance: LEVOLEUCOVORIN DISODIUM
     Indication: Chemotherapy side effect prophylaxis
     Dosage: STRENGTH: 50 MG/ML, SOLUTION FOR INJECTION OR FOR INFUSION, 250 MG
     Route: 041
     Dates: start: 20210901, end: 20210901

REACTIONS (1)
  - Infusion related reaction [Recovered/Resolved]

NARRATIVE: CASE EVENT DATE: 20210901
